FAERS Safety Report 8942408 (Version 1)
Quarter: 2012Q4

REPORT INFORMATION
  Report Type: 
  Country: US (occurrence: US)
  Receive Date: 20121204
  Receipt Date: 20121204
  Transmission Date: 20130627
  Serious: Yes (Death)
  Sender: FDA-Public Use
  Company Number: US-CELGENEUS-163-21880-12113979

PATIENT
  Age: 58 Year
  Sex: Female

DRUGS (5)
  1. REVLIMID [Suspect]
     Indication: MULTIPLE MYELOMA
     Dosage: 15 Milligram
     Route: 048
     Dates: start: 201010
  2. REVLIMID [Suspect]
     Dosage: 10 Milligram
     Route: 048
     Dates: start: 201102
  3. REVLIMID [Suspect]
     Dosage: 5 Milligram
     Route: 048
     Dates: start: 201105
  4. REVLIMID [Suspect]
     Dosage: 10 Milligram
     Route: 048
     Dates: start: 201107
  5. REVLIMID [Suspect]
     Dosage: 10 Milligram
     Route: 048
     Dates: start: 20121102, end: 20121103

REACTIONS (1)
  - Death [Fatal]
